FAERS Safety Report 5416869-8 (Version None)
Quarter: 2007Q3

REPORT INFORMATION
  Report Type: 
  Country: None (occurrence: None)
  Receive Date: 20070815
  Receipt Date: 20070815
  Transmission Date: 20080115
  Serious: No
  Sender: FDA-Public Use
  Company Number: None

PATIENT

DRUGS (1)
  1. NEOSPORIN [Suspect]

REACTIONS (5)
  - BLISTER [None]
  - DRUG HYPERSENSITIVITY [None]
  - MASS [None]
  - SWELLING FACE [None]
  - WOUND SECRETION [None]
